FAERS Safety Report 5237142-7 (Version None)
Quarter: 2007Q1

REPORT INFORMATION
  Report Type: 
  Country: None (occurrence: None)
  Receive Date: 20070213
  Receipt Date: 20070212
  Transmission Date: 20070707
  Serious: Yes (Hospitalization)
  Sender: FDA-Public Use
  Company Number: US-GLAXOSMITHKLINE-A0639218A

PATIENT
  Age: 66 Year
  Sex: Male

DRUGS (4)
  1. ADVAIR DISKUS 100/50 [Suspect]
     Indication: EMPHYSEMA
     Dosage: 2PUFF TWICE PER DAY
     Route: 055
  2. LIPITOR [Concomitant]
  3. FLOMAX [Concomitant]
  4. IRON [Concomitant]

REACTIONS (3)
  - CEREBROVASCULAR ACCIDENT [None]
  - HAEMORRHAGE [None]
  - RECTAL HAEMORRHAGE [None]
